FAERS Safety Report 9061480 (Version 4)
Quarter: 2013Q1

REPORT INFORMATION
  Report Type: Spontaneous
  Country: ZA (occurrence: ZA)
  Receive Date: 20130125
  Receipt Date: 20130315
  Transmission Date: 20140127
  Serious: Yes (Death, Hospitalization, Other)
  Sender: FDA-Public Use
  Company Number: ZA-JNJFOC-20130106037

PATIENT
  Age: 62 None
  Sex: Female
  Weight: 66 kg

DRUGS (2)
  1. REVELLEX [Suspect]
     Indication: RHEUMATOID ARTHRITIS
     Route: 042
     Dates: start: 20100513
  2. REVELLEX [Suspect]
     Indication: RHEUMATOID ARTHRITIS
     Route: 042
     Dates: end: 20121101

REACTIONS (9)
  - Death [Fatal]
  - Cholecystitis infective [Unknown]
  - Cholelithiasis [Unknown]
  - Duodenal ulcer perforation [Recovered/Resolved]
  - Urinary tract infection [Unknown]
  - Peritonitis [Unknown]
  - Metabolic disorder [Unknown]
  - Streptococcal sepsis [Unknown]
  - Anaemia [Unknown]
